FAERS Safety Report 18544781 (Version 2)
Quarter: 2020Q4

REPORT INFORMATION
  Report Type: Spontaneous
  Country: US (occurrence: US)
  Receive Date: 20201125
  Receipt Date: 20201211
  Transmission Date: 20210114
  Serious: Yes (Hospitalization)
  Sender: FDA-Public Use
  Company Number: US-GLAXOSMITHKLINE-US2020AMR231532

PATIENT
  Sex: Female

DRUGS (1)
  1. ZEJULA [Suspect]
     Active Substance: NIRAPARIB
     Indication: OVARIAN CANCER
     Dosage: 300 MG, QD
     Dates: start: 20201112

REACTIONS (6)
  - Arthralgia [Unknown]
  - Heart rate increased [Unknown]
  - Platelet count decreased [Recovering/Resolving]
  - Insomnia [Unknown]
  - Laboratory test abnormal [Unknown]
  - Fatigue [Unknown]
